FAERS Safety Report 8488074 (Version 3)
Quarter: 2012Q4

REPORT INFORMATION
  Report Type: 
  Country: US (occurrence: US)
  Receive Date: 20120402
  Receipt Date: 20121106
  Transmission Date: 20130627
  Serious: Yes (Other)
  Sender: FDA-Public Use
  Company Number: PHEH2012US006592

PATIENT
  Sex: Female

DRUGS (2)
  1. MYFORTIC [Suspect]
     Indication: COMPLICATIONS OF TRANSPLANTED LIVER
     Dosage: 360 mg, BID
     Route: 048
     Dates: start: 20111025
  2. PROGRAF [Concomitant]

REACTIONS (3)
  - Hernia [Unknown]
  - Dyspnoea [Unknown]
  - Feeling abnormal [Unknown]
